FAERS Safety Report 10341181 (Version 1)
Quarter: 2014Q3

REPORT INFORMATION
  Report Type: Spontaneous
  Country: TR (occurrence: TR)
  Receive Date: 20140724
  Receipt Date: 20140724
  Transmission Date: 20150326
  Serious: Yes (Death, Hospitalization, Other)
  Sender: FDA-Public Use
  Company Number: PHHY2014TR089269

PATIENT
  Age: 32 Year
  Sex: Male

DRUGS (4)
  1. DOXORUBICIN [Suspect]
     Active Substance: DOXORUBICIN
  2. VINCRISTINE [Suspect]
     Active Substance: VINCRISTINE
  3. RADIOTHERAPY [Suspect]
     Active Substance: RADIATION THERAPY
  4. DEXAMETHASONE. [Suspect]
     Active Substance: DEXAMETHASONE

REACTIONS (10)
  - Death [Fatal]
  - Febrile neutropenia [Unknown]
  - Facial pain [Unknown]
  - Malignant neoplasm progression [Unknown]
  - Plasmacytoma [Unknown]
  - Gastric mucosal lesion [Unknown]
  - Skin mass [Unknown]
  - Paraplegia [Unknown]
  - Mouth ulceration [Unknown]
  - Nausea [Unknown]
